FAERS Safety Report 12712074 (Version 8)
Quarter: 2017Q2

REPORT INFORMATION
  Report Type: Spontaneous
  Country: KR (occurrence: KR)
  Receive Date: 20160902
  Receipt Date: 20170615
  Transmission Date: 20170830
  Serious: Yes (Other)
  Sender: FDA-Public Use
  Company Number: KR-009507513-1606KOR009422

PATIENT
  Age: 34 Year
  Sex: Male
  Weight: 67.7 kg

DRUGS (42)
  1. EMEND (FOSAPREPITANT DIMEGLUMINE) [Suspect]
     Active Substance: FOSAPREPITANT DIMEGLUMINE
     Dosage: 150 MG, ONCE
     Route: 042
     Dates: start: 20160928, end: 20160928
  2. MABTHERA [Concomitant]
     Active Substance: RITUXIMAB
     Indication: DIFFUSE LARGE B-CELL LYMPHOMA
     Dosage: 682 MG, ONCE, CYCLE 1
     Route: 042
     Dates: start: 20160614, end: 20160614
  3. ENDOXAN [Concomitant]
     Active Substance: CYCLOPHOSPHAMIDE
     Dosage: 1365 MG, ONCE, CYCLE 5
     Route: 042
     Dates: start: 20160907, end: 20160907
  4. EMEND (FOSAPREPITANT DIMEGLUMINE) [Suspect]
     Active Substance: FOSAPREPITANT DIMEGLUMINE
     Dosage: 150 MG, ONCE
     Route: 042
     Dates: start: 20160817, end: 20160817
  5. MABTHERA [Concomitant]
     Active Substance: RITUXIMAB
     Dosage: 675 MG, ONCE, CYCLE 4
     Route: 042
     Dates: start: 20160817, end: 20160817
  6. MABTHERA [Concomitant]
     Active Substance: RITUXIMAB
     Dosage: 682 MG, ONCE, CYCLE 5
     Route: 042
     Dates: start: 20160907, end: 20160907
  7. ENDOXAN [Concomitant]
     Active Substance: CYCLOPHOSPHAMIDE
     Dosage: 1372 MG, ONCE, CYCLE 2
     Route: 042
     Dates: start: 20160705, end: 20160705
  8. VINCRISTINE SULFATE. [Concomitant]
     Active Substance: VINCRISTINE SULFATE
     Dosage: 2 MG, ONCE, CYCLE 3, STRENGTH 1 MG/ML -1ML
     Route: 042
     Dates: start: 20160726, end: 20160726
  9. ALOXI [Concomitant]
     Active Substance: PALONOSETRON HYDROCHLORIDE
     Indication: PROPHYLAXIS OF NAUSEA AND VOMITING
     Dosage: 0.25 MG, ONCE
     Route: 042
     Dates: start: 20160614, end: 20160614
  10. CARDIOXANE [Concomitant]
     Active Substance: DEXRAZOXANE HYDROCHLORIDE
     Dosage: 900 MG, ONCE
     Route: 042
     Dates: start: 20160817, end: 20160817
  11. CARDIOXANE [Concomitant]
     Active Substance: DEXRAZOXANE HYDROCHLORIDE
     Dosage: 910 MG, ONCE
     Route: 042
     Dates: start: 20160907, end: 20160907
  12. MABTHERA [Concomitant]
     Active Substance: RITUXIMAB
     Dosage: 686 MG, ONCE, CYCLE 2
     Route: 042
     Dates: start: 20160705, end: 20160705
  13. ENDOXAN [Concomitant]
     Active Substance: CYCLOPHOSPHAMIDE
     Indication: DIFFUSE LARGE B-CELL LYMPHOMA
     Dosage: 1365 MG, ONCE, CYCLE 1
     Route: 042
     Dates: start: 20160614, end: 20160614
  14. ENDOXAN [Concomitant]
     Active Substance: CYCLOPHOSPHAMIDE
     Dosage: 1350 MG, ONCE, CYCLE 4
     Route: 042
     Dates: start: 20160817, end: 20160817
  15. VINCRISTINE SULFATE. [Concomitant]
     Active Substance: VINCRISTINE SULFATE
     Dosage: 2 MG, ONCE, CYCLE 4, STRENGTH 1 MG/ML -1ML
     Route: 042
     Dates: start: 20160817, end: 20160817
  16. ALOXI [Concomitant]
     Active Substance: PALONOSETRON HYDROCHLORIDE
     Dosage: 0.25 MG, ONCE
     Route: 042
     Dates: start: 20160705, end: 20160705
  17. ALOXI [Concomitant]
     Active Substance: PALONOSETRON HYDROCHLORIDE
     Dosage: 0.25 MG, ONCE
     Route: 042
     Dates: start: 20160928, end: 20160928
  18. EMEND (FOSAPREPITANT DIMEGLUMINE) [Suspect]
     Active Substance: FOSAPREPITANT DIMEGLUMINE
     Dosage: 150 MG, ONCE
     Route: 042
     Dates: start: 20160705, end: 20160705
  19. EMEND (FOSAPREPITANT DIMEGLUMINE) [Suspect]
     Active Substance: FOSAPREPITANT DIMEGLUMINE
     Dosage: 150 MG, ONCE
     Route: 042
     Dates: start: 20160907, end: 20160907
  20. VINCRISTINE SULFATE. [Concomitant]
     Active Substance: VINCRISTINE SULFATE
     Dosage: 2 MG, ONCE, CYCLE 2, STRENGTH 1 MG/ML -1ML
     Route: 042
     Dates: start: 20160705, end: 20160705
  21. ALOXI [Concomitant]
     Active Substance: PALONOSETRON HYDROCHLORIDE
     Dosage: 0.25 MG, ONCE
     Route: 042
     Dates: start: 20160907, end: 20160907
  22. CARDIOXANE [Concomitant]
     Active Substance: DEXRAZOXANE HYDROCHLORIDE
     Dosage: 920 MG, ONCE
     Route: 042
     Dates: start: 20160726, end: 20160726
  23. MABTHERA [Concomitant]
     Active Substance: RITUXIMAB
     Dosage: 686 MG, ONCE, CYCLE 3
     Route: 042
     Dates: start: 20160726, end: 20160726
  24. VINCRISTINE SULFATE. [Concomitant]
     Active Substance: VINCRISTINE SULFATE
     Dosage: 2 MG, ONCE, CYCLE 6, STRENGTH 1 MG/ML -1ML
     Route: 042
     Dates: start: 20160928, end: 20160928
  25. ALOXI [Concomitant]
     Active Substance: PALONOSETRON HYDROCHLORIDE
     Dosage: 0.25 MG, ONCE
     Route: 042
     Dates: start: 20160726, end: 20160726
  26. EMEND (FOSAPREPITANT DIMEGLUMINE) [Suspect]
     Active Substance: FOSAPREPITANT DIMEGLUMINE
     Indication: PROPHYLAXIS OF NAUSEA AND VOMITING
     Dosage: 150 MG, ONCE
     Route: 042
     Dates: start: 20160614, end: 20160614
  27. ENDOXAN [Concomitant]
     Active Substance: CYCLOPHOSPHAMIDE
     Dosage: 1372 MG, ONCE, CYCLE 3
     Route: 042
     Dates: start: 20160726, end: 20160726
  28. CARDIOXANE [Concomitant]
     Active Substance: DEXRAZOXANE HYDROCHLORIDE
     Indication: PROPHYLAXIS
     Dosage: 910 MG, ONCE
     Route: 042
     Dates: start: 20160614, end: 20160614
  29. EMEND (FOSAPREPITANT DIMEGLUMINE) [Suspect]
     Active Substance: FOSAPREPITANT DIMEGLUMINE
     Dosage: 150 MG, ONCE
     Route: 042
     Dates: start: 20160726, end: 20160726
  30. MABTHERA [Concomitant]
     Active Substance: RITUXIMAB
     Dosage: 690 MG, ONCE, CYCLE 6
     Route: 042
     Dates: start: 20160928, end: 20160928
  31. ENDOXAN [Concomitant]
     Active Substance: CYCLOPHOSPHAMIDE
     Dosage: 1380 MG, ONCE, CYCLE 6
     Route: 042
     Dates: start: 20160928, end: 20160928
  32. ADRIAMYCIN [Concomitant]
     Active Substance: DOXORUBICIN HYDROCHLORIDE
     Dosage: 92 MG, ONCE, CYCLE 2
     Route: 042
     Dates: start: 20160705, end: 20160705
  33. ADRIAMYCIN [Concomitant]
     Active Substance: DOXORUBICIN HYDROCHLORIDE
     Dosage: 92 MG, ONCE, CYCLE 3
     Route: 042
     Dates: start: 20160726, end: 20160726
  34. VINCRISTINE SULFATE. [Concomitant]
     Active Substance: VINCRISTINE SULFATE
     Dosage: 2 MG, ONCE, CYCLE 5, STRENGTH 1 MG/ML -1ML
     Route: 042
     Dates: start: 20160907, end: 20160907
  35. CARDIOXANE [Concomitant]
     Active Substance: DEXRAZOXANE HYDROCHLORIDE
     Dosage: 920 MG, ONCE
     Route: 042
     Dates: start: 20160928, end: 20160928
  36. ADRIAMYCIN [Concomitant]
     Active Substance: DOXORUBICIN HYDROCHLORIDE
     Indication: DIFFUSE LARGE B-CELL LYMPHOMA
     Dosage: 91 MG, ONCE, CYCLE 1
     Route: 042
     Dates: start: 20160614, end: 20160614
  37. ADRIAMYCIN [Concomitant]
     Active Substance: DOXORUBICIN HYDROCHLORIDE
     Dosage: 90 MG, ONCE, CYCLE 4
     Route: 042
     Dates: start: 20160817, end: 20160817
  38. ADRIAMYCIN [Concomitant]
     Active Substance: DOXORUBICIN HYDROCHLORIDE
     Dosage: 90 MG, ONCE, CYCLE 5
     Route: 042
     Dates: start: 20160907, end: 20160907
  39. ADRIAMYCIN [Concomitant]
     Active Substance: DOXORUBICIN HYDROCHLORIDE
     Dosage: 92 MG, ONCE, CYCLE 6
     Route: 042
     Dates: start: 20160928, end: 20160928
  40. VINCRISTINE SULFATE. [Concomitant]
     Active Substance: VINCRISTINE SULFATE
     Indication: DIFFUSE LARGE B-CELL LYMPHOMA
     Dosage: 2 MG, ONCE, CYCLE 1, STRENGTH 1 MG/ML -1ML
     Route: 042
     Dates: start: 20160614, end: 20160614
  41. ALOXI [Concomitant]
     Active Substance: PALONOSETRON HYDROCHLORIDE
     Dosage: 0.25 MG, ONCE
     Route: 042
     Dates: start: 20160817, end: 20160817
  42. CARDIOXANE [Concomitant]
     Active Substance: DEXRAZOXANE HYDROCHLORIDE
     Dosage: 920 MG, ONCE
     Route: 042
     Dates: start: 20160705, end: 20160705

REACTIONS (2)
  - Infusion related reaction [Recovered/Resolved]
  - Intracranial aneurysm [Recovering/Resolving]

NARRATIVE: CASE EVENT DATE: 20160614
